FAERS Safety Report 7474291-7 (Version None)
Quarter: 2011Q2

REPORT INFORMATION
  Report Type: 
  Country: None (occurrence: None)
  Receive Date: 20110511
  Receipt Date: 20110503
  Transmission Date: 20111010
  Serious: Yes (Other)
  Sender: FDA-Public Use
  Company Number: US-AMGEN-USASP2011023106

PATIENT
  Sex: Female

DRUGS (2)
  1. CORTICOSTEROIDS [Concomitant]
     Dosage: UNK
     Dates: start: 20100716
  2. NPLATE [Suspect]
     Indication: IDIOPATHIC THROMBOCYTOPENIC PURPURA
     Dosage: 1 A?G/KG, UNK
     Dates: start: 20100917, end: 20110210

REACTIONS (2)
  - PLATELET COUNT INCREASED [None]
  - PLATELET COUNT DECREASED [None]
